FAERS Safety Report 17592163 (Version 1)
Quarter: 2020Q1

REPORT INFORMATION
  Report Type: Spontaneous
  Country: BE (occurrence: BE)
  Receive Date: 20200327
  Receipt Date: 20200327
  Transmission Date: 20200409
  Serious: Yes (Death, Hospitalization, Other)
  Sender: FDA-Public Use
  Company Number: BE-MYLANLABS-2020M1033115

PATIENT
  Age: 40 Year
  Sex: Female

DRUGS (2)
  1. CYTARABINE. [Suspect]
     Active Substance: CYTARABINE
     Indication: ACUTE MYELOID LEUKAEMIA
     Dosage: DAYS 1-7 (200 MG/SQ. METER)
  2. IDARUBICIN [Suspect]
     Active Substance: IDARUBICIN
     Indication: ACUTE MYELOID LEUKAEMIA
     Dosage: DAYS 1-3

REACTIONS (13)
  - Brain death [Fatal]
  - Colitis [Unknown]
  - Skin lesion [Unknown]
  - Hypotension [Unknown]
  - Sepsis [Unknown]
  - Cytomegalovirus test positive [Recovered/Resolved]
  - Tachycardia [Unknown]
  - Respiratory distress [Unknown]
  - Coma [Unknown]
  - Ascites [Unknown]
  - Hyperammonaemic encephalopathy [Fatal]
  - Febrile neutropenia [Unknown]
  - Enterococcal infection [Recovered/Resolved]
